FAERS Safety Report 7657675-3 (Version None)
Quarter: 2011Q3

REPORT INFORMATION
  Report Type: 
  Country: None (occurrence: None)
  Receive Date: 20110804
  Receipt Date: 20110725
  Transmission Date: 20111222
  Serious: Yes (Other)
  Sender: FDA-Public Use
  Company Number: US-MERCK-1011USA03393

PATIENT
  Age: 53 Year
  Sex: Female
  Weight: 64 kg

DRUGS (7)
  1. FOSAMAX [Suspect]
     Indication: OSTEOPENIA
     Route: 048
     Dates: start: 20011014, end: 20071202
  2. FOSAMAX [Suspect]
     Route: 048
     Dates: start: 20000201, end: 20000416
  3. FOSAMAX [Suspect]
     Route: 048
     Dates: start: 20010404, end: 20011013
  4. FOSAMAX [Suspect]
     Indication: OSTEOPOROSIS
     Route: 048
     Dates: start: 20011014, end: 20071202
  5. FOSAMAX PLUS D [Suspect]
     Indication: OSTEOPOROSIS
     Route: 048
  6. FOSAMAX [Suspect]
     Route: 048
     Dates: start: 20010404, end: 20011013
  7. FOSAMAX [Suspect]
     Route: 048
     Dates: start: 20000201, end: 20000416

REACTIONS (20)
  - BONE PAIN [None]
  - PANCREATIC CYST [None]
  - TREMOR [None]
  - DRUG HYPERSENSITIVITY [None]
  - HAEMORRHOIDS [None]
  - ASTHMA [None]
  - POLYP COLORECTAL [None]
  - DEEP VEIN THROMBOSIS [None]
  - TYPE 2 DIABETES MELLITUS [None]
  - BREAST DISCHARGE [None]
  - MENISCUS LESION [None]
  - MICTURITION URGENCY [None]
  - HYPERTONIC BLADDER [None]
  - NOCTURIA [None]
  - URTICARIA [None]
  - FEMUR FRACTURE [None]
  - HYPERLIPIDAEMIA [None]
  - GOITRE [None]
  - URINARY INCONTINENCE [None]
  - RASH [None]
